FAERS Safety Report 21752030 (Version 1)
Quarter: 2022Q4

REPORT INFORMATION
  Report Type: Spontaneous
  Country: US (occurrence: US)
  Receive Date: 20221220
  Receipt Date: 20221220
  Transmission Date: 20230112
  Serious: No
  Sender: FDA-Public Use
  Company Number: US-PADAGIS-2022PAD01099

PATIENT

DRUGS (1)
  1. TRETINOIN [Suspect]
     Active Substance: TRETINOIN
     Indication: Product used for unknown indication
     Dosage: AS DIRECTED
     Route: 061
     Dates: start: 202101

REACTIONS (2)
  - Lacrimation increased [None]
  - Product formulation issue [Unknown]

NARRATIVE: CASE EVENT DATE: 20210101
